FAERS Safety Report 18418491 (Version 2)
Quarter: 2020Q4

REPORT INFORMATION
  Report Type: Spontaneous
  Country: US (occurrence: US)
  Receive Date: 20201023
  Receipt Date: 20201027
  Transmission Date: 20210114
  Serious: Yes (Other)
  Sender: FDA-Public Use
  Company Number: US-SUNOVION-2020SUN003099

PATIENT
  Age: 75 Year
  Sex: Female

DRUGS (1)
  1. LONHALA MAGNAIR [Suspect]
     Active Substance: GLYCOPYRROLATE
     Dosage: 25 ?G
     Route: 055

REACTIONS (4)
  - Device power source issue [Unknown]
  - Incorrect dose administered [Unknown]
  - Tracheostomy [Unknown]
  - Device issue [Unknown]
